FAERS Safety Report 5614749-6 (Version None)
Quarter: 2008Q1

REPORT INFORMATION
  Report Type: 
  Country: None (occurrence: None)
  Receive Date: 20080205
  Receipt Date: 20080128
  Transmission Date: 20080703
  Serious: Yes (Hospitalization, Other)
  Sender: FDA-Public Use
  Company Number: US-ELI_LILLY_AND_COMPANY-US200801004340

PATIENT
  Sex: Male

DRUGS (3)
  1. HUMULIN R [Suspect]
     Dosage: 5 U, DAILY (1/D)
  2. HUMULIN N [Suspect]
  3. HUMULIN N [Suspect]
     Dosage: 3 U, EACH MORNING

REACTIONS (3)
  - BLOOD GLUCOSE DECREASED [None]
  - DIALYSIS [None]
  - LOSS OF CONSCIOUSNESS [None]
